FAERS Safety Report 13233560 (Version 8)
Quarter: 2018Q1

REPORT INFORMATION
  Report Type: Report from Study
  Country: None (occurrence: US)
  Receive Date: 20170215
  Receipt Date: 20180208
  Transmission Date: 20180508
  Serious: Yes (Other)
  Sender: FDA-Public Use
  Company Number: US-ABBVIE-17K-163-1868979-00

PATIENT
  Sex: Male
  Weight: 108.96 kg

DRUGS (2)
  1. HUMIRA [Suspect]
     Active Substance: ADALIMUMAB
     Indication: RHEUMATOID ARTHRITIS
  2. HUMIRA [Suspect]
     Active Substance: ADALIMUMAB
     Indication: HIDRADENITIS
     Route: 058
     Dates: start: 2013

REACTIONS (22)
  - Somnolence [Unknown]
  - Dizziness [Not Recovered/Not Resolved]
  - Pruritus generalised [Unknown]
  - Insomnia [Not Recovered/Not Resolved]
  - Photophobia [Unknown]
  - Hyperhidrosis [Unknown]
  - Dyspnoea [Not Recovered/Not Resolved]
  - Photopsia [Unknown]
  - Cataract [Not Recovered/Not Resolved]
  - Glaucoma [Unknown]
  - Dry skin [Recovered/Resolved]
  - Fatigue [Unknown]
  - Pain [Not Recovered/Not Resolved]
  - Arthralgia [Not Recovered/Not Resolved]
  - Motion sickness [Unknown]
  - Peripheral swelling [Not Recovered/Not Resolved]
  - Visual impairment [Not Recovered/Not Resolved]
  - Hyperhidrosis [Not Recovered/Not Resolved]
  - Hypoaesthesia [Unknown]
  - Cough [Not Recovered/Not Resolved]
  - Rash [Not Recovered/Not Resolved]
  - Hidradenitis [Unknown]

NARRATIVE: CASE EVENT DATE: 2013
